FAERS Safety Report 4571934-2 (Version None)
Quarter: 2005Q1

REPORT INFORMATION
  Report Type: 
  Country: None (occurrence: None)
  Receive Date: 20050202
  Receipt Date: 20050126
  Transmission Date: 20050727
  Serious: Yes (Disabling, Other)
  Sender: FDA-Public Use
  Company Number: SUS1-2004-00571

PATIENT
  Age: 11 Year
  Sex: Male
  Weight: 26.3 kg

DRUGS (5)
  1. ADDERALL XR (AMHPETAMINE ASPARTATE, AMPHETAMINE SULFATE, DEXTROAMPHETA [Suspect]
     Indication: ATTENTION DEFICIT/HYPERACTIVITY DISORDER
     Dosage: SEE IMAGE
     Dates: end: 20040507
  2. ADDERALL XR (AMHPETAMINE ASPARTATE, AMPHETAMINE SULFATE, DEXTROAMPHETA [Suspect]
     Indication: ATTENTION DEFICIT/HYPERACTIVITY DISORDER
     Dosage: SEE IMAGE
     Dates: start: 20040507, end: 20040515
  3. ADDERALL XR (AMHPETAMINE ASPARTATE, AMPHETAMINE SULFATE, DEXTROAMPHETA [Suspect]
     Indication: ATTENTION DEFICIT/HYPERACTIVITY DISORDER
     Dosage: SEE IMAGE
     Dates: start: 20020101
  4. CLONIDINE [Concomitant]
  5. TENEX [Concomitant]

REACTIONS (20)
  - CONVULSION [None]
  - DECREASED APPETITE [None]
  - DROOLING [None]
  - DRUG HYPERSENSITIVITY [None]
  - DRUG INEFFECTIVE [None]
  - DYSPNOEA [None]
  - FALL [None]
  - HEADACHE [None]
  - INCOHERENT [None]
  - LETHARGY [None]
  - LOSS OF CONSCIOUSNESS [None]
  - MOVEMENT DISORDER [None]
  - RASH [None]
  - REACTION TO MEDICAL AGENT PRESERVATIVES [None]
  - SLEEP DISORDER [None]
  - SOCIAL AVOIDANT BEHAVIOUR [None]
  - STREPTOCOCCAL INFECTION [None]
  - TIC [None]
  - TOURETTE'S DISORDER [None]
  - WEIGHT DECREASED [None]
